FAERS Safety Report 10087243 (Version 1)
Quarter: 2014Q2

REPORT INFORMATION
  Report Type: Spontaneous
  Country: US (occurrence: US)
  Receive Date: 20140418
  Receipt Date: 20140418
  Transmission Date: 20141212
  Serious: Yes (Death)
  Sender: FDA-Public Use
  Company Number: CHPA2014US005502

PATIENT
  Age: 73 Year
  Sex: Female

DRUGS (2)
  1. VOLTAREN GEL [Suspect]
     Indication: DIABETIC NEUROPATHY
     Dosage: UNK, UNK
     Route: 061
  2. VOLTAREN GEL [Suspect]
     Indication: OFF LABEL USE

REACTIONS (1)
  - Death [Fatal]
